FAERS Safety Report 11216368 (Version 1)
Quarter: 2015Q2

REPORT INFORMATION
  Report Type: Spontaneous
  Country: BR (occurrence: BR)
  Receive Date: 20150624
  Receipt Date: 20150624
  Transmission Date: 20150821
  Serious: Yes (Death)
  Sender: FDA-Public Use
  Company Number: BR-ASTRAZENECA-2015SE60620

PATIENT
  Sex: Male

DRUGS (1)
  1. SYMBICORT [Suspect]
     Active Substance: BUDESONIDE\FORMOTEROL FUMARATE DIHYDRATE
     Dosage: 320/9 MCG
     Route: 055
     Dates: start: 201506

REACTIONS (7)
  - Tremor [Unknown]
  - Drug ineffective [Unknown]
  - Intentional product misuse [Unknown]
  - Dyspnoea [Not Recovered/Not Resolved]
  - Death [Fatal]
  - Device difficult to use [None]
  - Fatigue [Unknown]

NARRATIVE: CASE EVENT DATE: 201506
